FAERS Safety Report 14602932 (Version 2)
Quarter: 2018Q2

REPORT INFORMATION
  Report Type: Spontaneous
  Country: US (occurrence: US)
  Receive Date: 20180306
  Receipt Date: 20180507
  Transmission Date: 20180711
  Serious: No
  Sender: FDA-Public Use
  Company Number: US-BAYER-2018-041913

PATIENT
  Age: 64 Year
  Sex: Female
  Weight: 42 kg

DRUGS (1)
  1. MIRALAX [Suspect]
     Active Substance: POLYETHYLENE GLYCOL 3350
     Indication: IRRITABLE BOWEL SYNDROME
     Dosage: 1 AND 1 QUARTER CAPFUL, QD
     Route: 048
     Dates: start: 201701

REACTIONS (12)
  - Dyschezia [Not Recovered/Not Resolved]
  - Product prescribing issue [Unknown]
  - Hair texture abnormal [Not Recovered/Not Resolved]
  - Product use in unapproved indication [Unknown]
  - Dry throat [Not Recovered/Not Resolved]
  - Drug prescribing error [Unknown]
  - Product use issue [Unknown]
  - Off label use [Unknown]
  - Gastrointestinal disorder [Not Recovered/Not Resolved]
  - Incorrect drug administration duration [Unknown]
  - Incorrect dose administered [Unknown]
  - Dry mouth [Not Recovered/Not Resolved]

NARRATIVE: CASE EVENT DATE: 201701
